FAERS Safety Report 17323874 (Version 1)
Quarter: 2020Q1

REPORT INFORMATION
  Report Type: Spontaneous
  Country: SE (occurrence: SE)
  Receive Date: 20200127
  Receipt Date: 20200127
  Transmission Date: 20200409
  Serious: Yes (Other)
  Sender: FDA-Public Use
  Company Number: SE-TEVA-2020-SE-1173823

PATIENT
  Age: 40 Year
  Sex: Female

DRUGS (3)
  1. BISOCARD [Concomitant]
     Active Substance: BISOPROLOL
     Dates: start: 201604
  2. OMEPRAZOLE. [Concomitant]
     Active Substance: OMEPRAZOLE
     Dates: start: 200707
  3. TOLTERODINE [Suspect]
     Active Substance: TOLTERODINE
     Indication: MICTURITION URGENCY
     Dosage: 4 MG
     Dates: start: 20191212, end: 20191220

REACTIONS (9)
  - Syncope [Recovering/Resolving]
  - Palpitations [Recovering/Resolving]
  - Urticaria [Recovering/Resolving]
  - Vision blurred [Recovering/Resolving]
  - Heart rate increased [Recovering/Resolving]
  - Dizziness [Recovering/Resolving]
  - Eczema [Recovering/Resolving]
  - Dyspnoea [Recovering/Resolving]
  - Diarrhoea [Recovering/Resolving]

NARRATIVE: CASE EVENT DATE: 20191213
